FAERS Safety Report 18114704 (Version 1)
Quarter: 2020Q3

REPORT INFORMATION
  Report Type: Report from Study
  Country: JP (occurrence: JP)
  Receive Date: 20200805
  Receipt Date: 20200805
  Transmission Date: 20201103
  Serious: Yes (Other)
  Sender: FDA-Public Use
  Company Number: JP-BIOVITRUM-2017BI00351986

PATIENT
  Age: 7 Year
  Sex: Male
  Weight: 22.8 kg

DRUGS (12)
  1. EFMOROCTOCOG ALFA [Suspect]
     Active Substance: EFMOROCTOCOG ALFA
     Dosage: 1500 IU, TIW
     Route: 042
     Dates: start: 20160422, end: 20160522
  2. EFMOROCTOCOG ALFA [Suspect]
     Active Substance: EFMOROCTOCOG ALFA
     Dosage: 55 IU/KG, 1X
     Route: 042
     Dates: start: 20161209, end: 20161209
  3. EFMOROCTOCOG ALFA [Suspect]
     Active Substance: EFMOROCTOCOG ALFA
     Dosage: 55 IU/KG, 1X
     Route: 042
     Dates: start: 20161209, end: 20161209
  4. EFMOROCTOCOG ALFA [Suspect]
     Active Substance: EFMOROCTOCOG ALFA
     Dosage: 1000 IU, QOD
     Route: 042
     Dates: start: 20161226, end: 20170311
  5. EFMOROCTOCOG ALFA [Suspect]
     Active Substance: EFMOROCTOCOG ALFA
     Indication: FACTOR VIII DEFICIENCY
     Dosage: 3 TIMES A WEEK (MONDAY 1000 ? WEDNESDAY 1000 ? FRIDAY 1500 IU), MORNING
     Route: 042
     Dates: start: 20160523, end: 20161225
  6. EFMOROCTOCOG ALFA [Suspect]
     Active Substance: EFMOROCTOCOG ALFA
     Dosage: 1000 IU, TIW
     Route: 042
     Dates: start: 20160311, end: 20160421
  7. EFMOROCTOCOG ALFA [Suspect]
     Active Substance: EFMOROCTOCOG ALFA
     Dosage: 1500 IU, TIW
     Route: 042
     Dates: start: 20160422, end: 20160522
  8. EFMOROCTOCOG ALFA [Suspect]
     Active Substance: EFMOROCTOCOG ALFA
     Indication: FACTOR VIII DEFICIENCY
     Dosage: 3 TIMES A WEEK (MONDAY 1000 ? WEDNESDAY 1000 ? FRIDAY 1500 IU), MORNING
     Route: 042
     Dates: start: 20160523, end: 20161225
  9. EFMOROCTOCOG ALFA [Suspect]
     Active Substance: EFMOROCTOCOG ALFA
     Dosage: 1000 IU, QOD
     Route: 042
     Dates: start: 20161226, end: 20170311
  10. KOGENATE FS [Suspect]
     Active Substance: ANTIHEMOPHILIC FACTOR, HUMAN RECOMBINANT
     Dosage: 74 IU/KG, 1X
     Route: 042
     Dates: start: 20161220, end: 20161220
  11. EFMOROCTOCOG ALFA [Suspect]
     Active Substance: EFMOROCTOCOG ALFA
     Dosage: 1000 IU, TIW
     Route: 042
     Dates: start: 20160311, end: 20160421
  12. KOGENATE FS [Suspect]
     Active Substance: ANTIHEMOPHILIC FACTOR, HUMAN RECOMBINANT
     Indication: FACTOR VIII DEFICIENCY
     Dosage: EPISODIC THERAPY AND ROUTINE PROPHYLAXIS OF ELOCTATE, THE 1ST DOSE AT 1000 UNITS, 7 TIMES IN TOTAL
     Route: 042
     Dates: start: 20160621, end: 20170104

REACTIONS (3)
  - Gait disturbance [Recovered/Resolved]
  - Haemarthrosis [Recovered/Resolved]
  - Factor VIII inhibition [Recovered/Resolved]

NARRATIVE: CASE EVENT DATE: 20161130
